FAERS Safety Report 18334959 (Version 1)
Quarter: 2020Q4

REPORT INFORMATION
  Report Type: Spontaneous
  Country: US (occurrence: US)
  Receive Date: 20201001
  Receipt Date: 20201001
  Transmission Date: 20210113
  Serious: No
  Sender: FDA-Public Use
  Company Number: US-PFIZER INC-2020375885

PATIENT
  Age: 65 Year
  Sex: Male
  Weight: 54.88 kg

DRUGS (2)
  1. METHYLPREDNISOLONE. [Suspect]
     Active Substance: METHYLPREDNISOLONE
     Indication: BACK PAIN
     Dosage: UNK (REPORTED AS 19 OR 20 YEARS)
  2. METHYLPREDNISOLONE. [Suspect]
     Active Substance: METHYLPREDNISOLONE
     Dosage: UNK (REPORTED TOOK 4 DOSES ON FIRST DAY)
     Dates: start: 20200926

REACTIONS (5)
  - Taste disorder [Not Recovered/Not Resolved]
  - Product complaint [Unknown]
  - Abdominal pain upper [Recovering/Resolving]
  - Therapeutic product effect delayed [Unknown]
  - Diarrhoea [Unknown]

NARRATIVE: CASE EVENT DATE: 20200926
